FAERS Safety Report 19077905 (Version 2)
Quarter: 2021Q3

REPORT INFORMATION
  Report Type: Spontaneous
  Country: AU (occurrence: AU)
  Receive Date: 20210331
  Receipt Date: 20210723
  Transmission Date: 20211014
  Serious: Yes (Hospitalization, Other)
  Sender: FDA-Public Use
  Company Number: AU-MYLANLABS-2021M1018785

PATIENT
  Age: 29 Year
  Sex: Male

DRUGS (2)
  1. COVID?19 VACCINE NOS. [Suspect]
     Active Substance: COVID-19 VACCINE NOS
     Indication: PRODUCT USED FOR UNKNOWN INDICATION
     Dosage: UNK
  2. CLOZARIL [Suspect]
     Active Substance: CLOZAPINE
     Indication: SCHIZOPHRENIA
     Dosage: 350 MILLIGRAM
     Route: 048
     Dates: start: 20150807

REACTIONS (2)
  - Hospitalisation [Unknown]
  - Antipsychotic drug level increased [Unknown]

NARRATIVE: CASE EVENT DATE: 20210311
